FAERS Safety Report 5532957-X (Version None)
Quarter: 2007Q4

REPORT INFORMATION
  Report Type: 
  Country: None (occurrence: None)
  Receive Date: 20071129
  Receipt Date: 20071129
  Transmission Date: 20080405
  Serious: No
  Sender: FDA-Public Use
  Company Number: None

PATIENT
  Age: 44 Year
  Sex: Female
  Weight: 86.1834 kg

DRUGS (1)
  1. CHANTIX [Suspect]
     Indication: SMOKING CESSATION THERAPY
     Dosage: 1MG  TWICE A /DAY  PO
     Route: 048
     Dates: start: 20070923, end: 20071117

REACTIONS (6)
  - AGGRESSION [None]
  - CRYING [None]
  - DEPRESSION [None]
  - FATIGUE [None]
  - FEELINGS OF WORTHLESSNESS [None]
  - SOMNOLENCE [None]
